FAERS Safety Report 5620150-1 (Version None)
Quarter: 2008Q1

REPORT INFORMATION
  Report Type: 
  Country: None (occurrence: None)
  Receive Date: 20080208
  Receipt Date: 20080129
  Transmission Date: 20080703
  Serious: Yes (Hospitalization)
  Sender: FDA-Public Use
  Company Number: US-ASTRAZENECA-2008UW02159

PATIENT
  Age: 68 Year
  Sex: Female

DRUGS (5)
  1. ARIMIDEX [Suspect]
     Indication: BREAST CANCER
     Route: 048
     Dates: start: 20060601
  2. ZYRTEC [Concomitant]
  3. ALLERGY SHOT MIXED BY HCP [Concomitant]
  4. VITAMINS [Concomitant]
  5. VITAMIN D [Concomitant]

REACTIONS (4)
  - GALLBLADDER DISORDER [None]
  - HOT FLUSH [None]
  - STOMACH DISCOMFORT [None]
  - URINARY TRACT INFECTION [None]
